FAERS Safety Report 8993850 (Version 2)
Quarter: 2013Q1

REPORT INFORMATION
  Report Type: Spontaneous
  Country: US (occurrence: US)
  Receive Date: 20130102
  Receipt Date: 20130204
  Transmission Date: 20140127
  Serious: No
  Sender: FDA-Public Use
  Company Number: US-AMGEN-USASP2012083401

PATIENT
  Age: 46 Year
  Sex: Female

DRUGS (1)
  1. ENBREL [Suspect]
     Indication: RHEUMATOID ARTHRITIS
     Dosage: 50 MG, UNK
     Dates: start: 201210

REACTIONS (7)
  - Limb operation [Unknown]
  - Injection site reaction [Unknown]
  - Injection site erythema [Unknown]
  - Injection site pain [Unknown]
  - Injection site warmth [Recovered/Resolved]
  - Injection site urticaria [Recovered/Resolved]
  - Injection site recall reaction [Unknown]
